FAERS Safety Report 5375896-X (Version None)
Quarter: 2007Q2

REPORT INFORMATION
  Report Type: 
  Country: None (occurrence: None)
  Receive Date: 20070627
  Receipt Date: 20070627
  Transmission Date: 20071010
  Serious: Yes (Life-Threatening, Other)
  Sender: FDA-Public Use
  Company Number: None

PATIENT
  Age: 50 Year
  Sex: Female
  Weight: 65.7716 kg

DRUGS (2)
  1. EFFEXOR XR [Suspect]
     Indication: DEPRESSION
     Dosage: 150 MG DAILY PO
     Route: 048
     Dates: start: 20050801, end: 20070625
  2. RELPAX [Suspect]
     Indication: MIGRAINE
     Dosage: 40 MG TWICE DAILY PRN PO
     Route: 048
     Dates: start: 20030101, end: 20070626

REACTIONS (20)
  - ABDOMINAL TENDERNESS [None]
  - AGITATION [None]
  - CHEST DISCOMFORT [None]
  - CONFUSIONAL STATE [None]
  - COORDINATION ABNORMAL [None]
  - DIARRHOEA [None]
  - FEELING HOT [None]
  - FOOD INTOLERANCE [None]
  - HYPERHIDROSIS [None]
  - HYPERTENSION [None]
  - HYPOVENTILATION [None]
  - LOCALISED OEDEMA [None]
  - MALAISE [None]
  - NAUSEA [None]
  - PANIC ATTACK [None]
  - PYREXIA [None]
  - RESPIRATORY RATE INCREASED [None]
  - RESTLESSNESS [None]
  - SEROTONIN SYNDROME [None]
  - TREMOR [None]
